FAERS Safety Report 20100596 (Version 1)
Quarter: 2021Q4

REPORT INFORMATION
  Report Type: Spontaneous
  Country: US (occurrence: US)
  Receive Date: 20211123
  Receipt Date: 20211123
  Transmission Date: 20220303
  Serious: No
  Sender: FDA-Public Use
  Company Number: US-CIPLA LTD.-2021US05308

PATIENT

DRUGS (7)
  1. BUDESONIDE [Suspect]
     Active Substance: BUDESONIDE
     Indication: Asthma
     Dosage: UNK, BID
     Route: 065
     Dates: start: 20210522
  2. BUDESONIDE [Suspect]
     Active Substance: BUDESONIDE
     Dosage: UNK, BID
     Route: 065
     Dates: start: 20210707
  3. BUDESONIDE [Suspect]
     Active Substance: BUDESONIDE
     Dosage: UNK, BID
     Route: 065
     Dates: start: 202107
  4. ALBUTEROL [Suspect]
     Active Substance: ALBUTEROL
     Indication: Asthma
     Dosage: UNK, EVERY 4 HOURS
     Route: 065
     Dates: start: 20210522
  5. ALBUTEROL [Suspect]
     Active Substance: ALBUTEROL
     Dosage: UNK, EVERY 4 HOURS
     Route: 065
     Dates: start: 20210707
  6. ALBUTEROL [Suspect]
     Active Substance: ALBUTEROL
     Dosage: UNK, EVERY 4 HOURS
     Route: 065
     Dates: start: 202107
  7. VITAMINS [Concomitant]
     Active Substance: VITAMINS
     Indication: Hypovitaminosis
     Dosage: UNK, SINCE 2 YEAR OLD
     Route: 065

REACTIONS (3)
  - Product administration error [Not Recovered/Not Resolved]
  - Liquid product physical issue [Unknown]
  - Device occlusion [Unknown]

NARRATIVE: CASE EVENT DATE: 20210101
